APPROVED DRUG PRODUCT: FENTANYL
Active Ingredient: FENTANYL CITRATE
Strength: EQ 0.3MG BASE
Dosage Form/Route: TROCHE/LOZENGE;ORAL
Application: N020195 | Product #002
Applicant: CEPHALON INC
Approved: Oct 4, 1993 | RLD: No | RS: No | Type: DISCN